FAERS Safety Report 8347546-1 (Version None)
Quarter: 2012Q2

REPORT INFORMATION
  Report Type: 
  Country: None (occurrence: None)
  Receive Date: 20120509
  Receipt Date: 20120507
  Transmission Date: 20120825
  Serious: Yes (Death)
  Sender: FDA-Public Use
  Company Number: US-ROCHE-1045456

PATIENT
  Sex: Male

DRUGS (8)
  1. TEMODAR [Concomitant]
     Dosage: PULSE DOSE
  2. DACARBAZINE [Concomitant]
  3. KEPPRA [Concomitant]
     Indication: CONVULSION
     Route: 048
  4. ZELBORAF [Suspect]
     Indication: METASTASES TO CENTRAL NERVOUS SYSTEM
  5. ABRAXANE [Concomitant]
  6. ZELBORAF [Suspect]
  7. AVASTIN [Suspect]
     Indication: MALIGNANT MELANOMA
     Route: 065
     Dates: start: 20101220
  8. ZELBORAF [Suspect]
     Indication: MALIGNANT MELANOMA
     Dosage: DOSE: 4 TABS BID
     Route: 065
     Dates: start: 20110926, end: 20120109

REACTIONS (1)
  - DISEASE PROGRESSION [None]
